FAERS Safety Report 18483937 (Version 1)
Quarter: 2020Q4

REPORT INFORMATION
  Report Type: Spontaneous
  Country: CH (occurrence: CH)
  Receive Date: 20201109
  Receipt Date: 20201109
  Transmission Date: 20210114
  Serious: Yes (Other)
  Sender: FDA-Public Use
  Company Number: CH-BRISTOL-MYERS SQUIBB COMPANY-BMS-2020-092463

PATIENT
  Age: 65 Year
  Sex: Male

DRUGS (12)
  1. NEXIUM [Suspect]
     Active Substance: ESOMEPRAZOLE MAGNESIUM
     Dosage: 20 MG DAILY
     Dates: start: 20201006
  2. EUTHYROX [Concomitant]
     Active Substance: LEVOTHYROXINE SODIUM
     Indication: PRODUCT USED FOR UNKNOWN INDICATION
     Route: 065
     Dates: start: 20200913
  3. ELIQUIS [Suspect]
     Active Substance: APIXABAN
     Indication: PRODUCT USED FOR UNKNOWN INDICATION
     Dosage: 5 MILLIGRAM, BID
     Route: 048
     Dates: start: 20201005
  4. REMERON [Suspect]
     Active Substance: MIRTAZAPINE
     Indication: PRODUCT USED FOR UNKNOWN INDICATION
     Dosage: 30 MG DAILY
     Route: 048
     Dates: start: 20200922
  5. NEXIUM [Suspect]
     Active Substance: ESOMEPRAZOLE MAGNESIUM
     Indication: PRODUCT USED FOR UNKNOWN INDICATION
     Dosage: 40 MG DAILY
     Route: 048
     Dates: start: 20200913, end: 20201006
  6. INSULINE GLARGINE [Concomitant]
     Active Substance: INSULIN GLARGINE
     Indication: PRODUCT USED FOR UNKNOWN INDICATION
     Route: 058
     Dates: start: 20200909
  7. TAVANIC [Suspect]
     Active Substance: LEVOFLOXACIN
     Indication: PRODUCT USED FOR UNKNOWN INDICATION
     Dosage: 500 MG DAILY
     Route: 048
     Dates: start: 20200913
  8. LISINOPRIL. [Suspect]
     Active Substance: LISINOPRIL
     Indication: PRODUCT USED FOR UNKNOWN INDICATION
     Dosage: 5 MG DAILY
     Route: 048
     Dates: start: 20201006
  9. BELOC ZOK [Suspect]
     Active Substance: METOPROLOL SUCCINATE
     Indication: PRODUCT USED FOR UNKNOWN INDICATION
     Dosage: 12.5 MG DAILY
     Route: 048
     Dates: start: 20201005
  10. ATORVASTATINE [ATORVASTATIN CALCIUM] [Concomitant]
     Active Substance: ATORVASTATIN CALCIUM
     Indication: PRODUCT USED FOR UNKNOWN INDICATION
     Route: 065
     Dates: start: 20201005
  11. SOLU-CORTEF [Concomitant]
     Active Substance: HYDROCORTISONE SODIUM SUCCINATE
     Indication: PRODUCT USED FOR UNKNOWN INDICATION
     Route: 065
     Dates: start: 20200922
  12. ASPIRIN CARDIO [Concomitant]
     Active Substance: ASPIRIN
     Indication: PRODUCT USED FOR UNKNOWN INDICATION
     Route: 065
     Dates: start: 20200911

REACTIONS (1)
  - Agranulocytosis [Unknown]

NARRATIVE: CASE EVENT DATE: 20201008
